FAERS Safety Report 15525126 (Version 2)
Quarter: 2018Q4

REPORT INFORMATION
  Report Type: Spontaneous
  Country: US (occurrence: US)
  Receive Date: 20181018
  Receipt Date: 20181120
  Transmission Date: 20190205
  Serious: No
  Sender: FDA-Public Use
  Company Number: US-ASTRAZENECA-2018SF22820

PATIENT
  Age: 25140 Day
  Sex: Female
  Weight: 106.6 kg

DRUGS (1)
  1. TUDORZA PRESSAIR [Suspect]
     Active Substance: ACLIDINIUM BROMIDE
     Indication: ASTHMA
     Route: 055

REACTIONS (9)
  - Panic attack [Unknown]
  - Body height decreased [Unknown]
  - Device issue [Unknown]
  - Product dose omission [Unknown]
  - Off label use [Unknown]
  - Asthma [Unknown]
  - Circumstance or information capable of leading to medication error [Unknown]
  - Arthropathy [Unknown]
  - Product use in unapproved indication [Unknown]

NARRATIVE: CASE EVENT DATE: 20180818
